FAERS Safety Report 5756559-5 (Version None)
Quarter: 2008Q2

REPORT INFORMATION
  Report Type: 
  Country: None (occurrence: None)
  Receive Date: 20080603
  Receipt Date: 20080526
  Transmission Date: 20081010
  Serious: Yes (Hospitalization, Other)
  Sender: FDA-Public Use
  Company Number: PHHY2008GT05249

PATIENT
  Age: 60 Year

DRUGS (12)
  1. DIOVAN HCT [Suspect]
     Indication: HYPERTENSION
     Dosage: 320/25 MG DAILY
     Route: 048
     Dates: start: 20080225
  2. DIOVAN HCT [Suspect]
     Dosage: 320/25 MG DAILY
     Route: 048
     Dates: start: 20080507
  3. VASTAREL [Concomitant]
     Dosage: 1 TABLET EVERY 12 HOURS
     Route: 048
  4. CARDIMEN [Concomitant]
     Dosage: 20 MG, QD
     Route: 048
  5. CRESTOR [Concomitant]
     Dosage: 10 MG EVERY 24 HOURS
     Route: 048
  6. OMEPRAZOL ^ACYFABRIK^ [Suspect]
     Dosage: UNK
     Route: 048
  7. MEDOCOR [Concomitant]
  8. RIVOTRIL [Concomitant]
     Dosage: 0.5 MG/DAY
     Route: 048
  9. DORMICUN [Concomitant]
     Dosage: 7.5 MG
     Route: 048
  10. SUCRALFATE [Concomitant]
     Dosage: 1 G
     Route: 048
  11. ATENOLOL [Concomitant]
     Dosage: 25 MG/DAY
     Route: 048
  12. DIFLUCAN [Concomitant]
     Dosage: 150 MG/DAY
     Route: 048

REACTIONS (6)
  - ANGINA UNSTABLE [None]
  - BLOOD CREATINE PHOSPHOKINASE MB INCREASED [None]
  - BUNDLE BRANCH BLOCK LEFT [None]
  - CHEST PAIN [None]
  - ELECTROCARDIOGRAM REPOLARISATION ABNORMALITY [None]
  - TROPONIN T INCREASED [None]
